FAERS Safety Report 6621342-5 (Version None)
Quarter: 2010Q1

REPORT INFORMATION
  Report Type: 
  Country: None (occurrence: None)
  Receive Date: 20100309
  Receipt Date: 20100205
  Transmission Date: 20100710
  Serious: No
  Sender: FDA-Public Use
  Company Number: US-BIOGENIDEC-2010BI004092

PATIENT
  Age: 32 Year
  Sex: Male

DRUGS (1)
  1. AVONEX [Suspect]
     Indication: MULTIPLE SCLEROSIS
     Route: 030
     Dates: start: 20090521, end: 20100129

REACTIONS (7)
  - BACK PAIN [None]
  - EYE DISORDER [None]
  - FALL [None]
  - MASS [None]
  - MUSCULOSKELETAL STIFFNESS [None]
  - NAUSEA [None]
  - TREMOR [None]
